FAERS Safety Report 5757883-2 (Version None)
Quarter: 2008Q2

REPORT INFORMATION
  Report Type: 
  Country: None (occurrence: None)
  Receive Date: 20080602
  Receipt Date: 20080602
  Transmission Date: 20081010
  Serious: Yes (Hospitalization)
  Sender: FDA-Public Use
  Company Number: None

PATIENT
  Sex: Male
  Weight: 68.3117 kg

DRUGS (2)
  1. RITUXIMAB [Suspect]
     Indication: NON-HODGKIN'S LYMPHOMA
     Dosage: 665 MG Q21DAYS IV
     Route: 042
     Dates: start: 20080529
  2. RITUXIMAB [Suspect]

REACTIONS (4)
  - CHILLS [None]
  - DYSPNOEA [None]
  - INFUSION RELATED REACTION [None]
  - NASOPHARYNGITIS [None]
